FAERS Safety Report 13919404 (Version 1)
Quarter: 2017Q3

REPORT INFORMATION
  Report Type: Report from Study
  Country: US (occurrence: US)
  Receive Date: 20170830
  Receipt Date: 20170830
  Transmission Date: 20171127
  Serious: No
  Sender: FDA-Public Use
  Company Number: US-TEVA-802162ACC

PATIENT

DRUGS (3)
  1. RITUXIMAB. [Suspect]
     Active Substance: RITUXIMAB
     Indication: B-CELL LYMPHOMA
     Dosage: ON DAY 1
     Route: 042
  2. VELIPARIB [Suspect]
     Active Substance: VELIPARIB
     Indication: B-CELL LYMPHOMA
     Dosage: TWICE DAILY,ON DAYS 1-7
     Route: 048
  3. BENDAMUSTINE HYDROCHLORIDE. [Suspect]
     Active Substance: BENDAMUSTINE HYDROCHLORIDE
     Indication: B-CELL LYMPHOMA
     Dosage: ON DAYS 1 AND 2
     Route: 042

REACTIONS (2)
  - Toxicity to various agents [Unknown]
  - Nausea [Not Recovered/Not Resolved]
